FAERS Safety Report 4334284-5 (Version None)
Quarter: 2004Q2

REPORT INFORMATION
  Report Type: 
  Country: None (occurrence: None)
  Receive Date: 20040405
  Receipt Date: 20040324
  Transmission Date: 20050107
  Serious: Yes (Hospitalization)
  Sender: FDA-Public Use
  Company Number: 04P-163-0254988-00

PATIENT
  Sex: Male

DRUGS (2)
  1. TRICOR [Suspect]
  2. SEIZURE MEDICATION [Concomitant]

REACTIONS (1)
  - TREMOR [None]
